FAERS Safety Report 4969726-5 (Version None)
Quarter: 2006Q2

REPORT INFORMATION
  Report Type: 
  Country: None (occurrence: None)
  Receive Date: 20060411
  Receipt Date: 20051109
  Transmission Date: 20061013
  Serious: Yes (Death, Hospitalization)
  Sender: FDA-Public Use
  Company Number: FR-SANOFI-SYNTHELABO-F01200502413

PATIENT
  Sex: Female

DRUGS (5)
  1. OXALIPLATIN [Suspect]
     Indication: COLORECTAL CANCER METASTATIC
     Route: 042
     Dates: start: 20051010, end: 20051010
  2. FLUOROURACIL [Suspect]
     Route: 042
     Dates: start: 20051010, end: 20051010
  3. LEUCOVORIN [Suspect]
     Route: 042
     Dates: start: 20051010, end: 20051010
  4. DETENSIEL [Concomitant]
  5. IKOREL [Concomitant]

REACTIONS (7)
  - ABDOMINAL PAIN [None]
  - ANOREXIA [None]
  - COLORECTAL CANCER METASTATIC [None]
  - NAUSEA [None]
  - PROTHROMBIN LEVEL DECREASED [None]
  - VOMITING [None]
  - WEIGHT DECREASED [None]
